FAERS Safety Report 4516266-3 (Version None)
Quarter: 2004Q4

REPORT INFORMATION
  Report Type: 
  Country: None (occurrence: None)
  Receive Date: 20041129
  Receipt Date: 20041115
  Transmission Date: 20050328
  Serious: Yes (Hospitalization, Other)
  Sender: FDA-Public Use
  Company Number: 2004094361

PATIENT
  Age: 47 Year
  Sex: Female
  Weight: 87.0906 kg

DRUGS (4)
  1. CELEBREX [Suspect]
     Indication: ARTHRITIS
     Dosage: 200 MG (200 MG, DAILY), ORAL
     Route: 048
     Dates: start: 20041001
  2. LEVOTHYROXINE SODIUM (LEVOTHYROXINE) [Concomitant]
  3. MONTELUKAST SODIUM  (MONTELUKAST SODIUM) [Concomitant]
  4. BUDESONIDE (BUDESONIDE) [Concomitant]

REACTIONS (6)
  - BONE PAIN [None]
  - CARDIAC DISORDER [None]
  - CORONARY ARTERY OCCLUSION [None]
  - DRUG INEFFECTIVE [None]
  - HIATUS HERNIA [None]
  - SINOATRIAL BLOCK [None]
